FAERS Safety Report 4769945-7 (Version None)
Quarter: 2005Q3

REPORT INFORMATION
  Report Type: 
  Country: None (occurrence: None)
  Receive Date: 20050914
  Receipt Date: 20050908
  Transmission Date: 20060218
  Serious: Yes (Other)
  Sender: FDA-Public Use
  Company Number: TCI2005A03636

PATIENT
  Age: 73 Year
  Sex: Female

DRUGS (4)
  1. ACTOS [Suspect]
     Indication: DIABETES MELLITUS NON-INSULIN-DEPENDENT
     Dosage: SEE IMAGE
     Route: 048
     Dates: start: 20050401, end: 20050722
  2. ACTOS [Suspect]
     Indication: DIABETES MELLITUS NON-INSULIN-DEPENDENT
     Dosage: SEE IMAGE
     Route: 048
     Dates: start: 20050722, end: 20050729
  3. BLOPRESS (CANDESARTAN CILEXETIL) [Concomitant]
  4. EUGLUCON (GLIBENCLAMIDE) [Concomitant]

REACTIONS (5)
  - ASCITES [None]
  - DISEASE PROGRESSION [None]
  - HEPATIC CIRRHOSIS [None]
  - REFUSAL OF TREATMENT BY PATIENT [None]
  - WEIGHT INCREASED [None]
